FAERS Safety Report 6648047-9 (Version None)
Quarter: 2010Q1

REPORT INFORMATION
  Report Type: 
  Country: None (occurrence: None)
  Receive Date: 20100324
  Receipt Date: 20100315
  Transmission Date: 20100710
  Serious: Yes (Other)
  Sender: FDA-Public Use
  Company Number: PHEH2007US05851

PATIENT
  Sex: Female

DRUGS (3)
  1. ZELNORM [Suspect]
     Indication: IRRITABLE BOWEL SYNDROME
     Dosage: 6 MG, QD
     Route: 048
     Dates: start: 20050101, end: 20050101
  2. ZELNORM [Suspect]
     Dosage: 6 MG, QD
     Route: 048
     Dates: start: 20060619, end: 20070427
  3. DICYCLOMINE [Suspect]

REACTIONS (9)
  - ABDOMINAL PAIN LOWER [None]
  - BLADDER PAIN [None]
  - DIARRHOEA [None]
  - DRUG INEFFECTIVE [None]
  - HAEMATOCHEZIA [None]
  - PAIN [None]
  - PAINFUL DEFAECATION [None]
  - SWELLING [None]
  - WEIGHT INCREASED [None]
